FAERS Safety Report 16843375 (Version 2)
Quarter: 2019Q4

REPORT INFORMATION
  Report Type: Spontaneous
  Country: HR (occurrence: HR)
  Receive Date: 20190924
  Receipt Date: 20191007
  Transmission Date: 20200122
  Serious: Yes (Other)
  Sender: FDA-Public Use
  Company Number: HR-ROCHE-2413574

PATIENT
  Sex: Female

DRUGS (4)
  1. OMNIC [Concomitant]
     Active Substance: TAMSULOSIN HYDROCHLORIDE
     Route: 065
  2. KETONAL [KETOPROFEN] [Concomitant]
     Dosage: AS NEEDED
     Route: 065
  3. OCREVUS [Suspect]
     Active Substance: OCRELIZUMAB
     Indication: PRIMARY PROGRESSIVE MULTIPLE SCLEROSIS
     Dosage: PATIENT GOT 4 CYCLES OF OCRELIZUMAB.?MOST RECENT DOSE WAS ON 09/SEP/2019
     Route: 042
  4. ROSUVASTATIN. [Concomitant]
     Active Substance: ROSUVASTATIN
     Route: 065

REACTIONS (1)
  - Basal cell carcinoma [Unknown]
